FAERS Safety Report 7875801-8 (Version None)
Quarter: 2011Q4

REPORT INFORMATION
  Report Type: 
  Country: None (occurrence: None)
  Receive Date: 20111031
  Receipt Date: 20111025
  Transmission Date: 20120403
  Serious: Yes (Death)
  Sender: FDA-Public Use
  Company Number: US-ROCHE-1007556

PATIENT
  Age: 58 Year
  Sex: Male

DRUGS (3)
  1. TELAPREVIR [Concomitant]
  2. RIBAVIRIN [Concomitant]
  3. PEGASYS [Suspect]
     Indication: PRODUCT USED FOR UNKNOWN INDICATION

REACTIONS (1)
  - DEATH [None]
